FAERS Safety Report 12479400 (Version 1)
Quarter: 2016Q2

REPORT INFORMATION
  Report Type: Spontaneous
  Country: US (occurrence: None)
  Receive Date: 20160617
  Receipt Date: 20160617
  Transmission Date: 20160815
  Serious: Yes (Hospitalization)
  Sender: FDA-Public Use
  Company Number: None

PATIENT
  Age: 60 Year
  Sex: Male
  Weight: 58.3 kg

DRUGS (1)
  1. BEVACIZUMAB (RHUMAB VEGF) [Suspect]
     Active Substance: BEVACIZUMAB
     Dates: end: 20160524

REACTIONS (5)
  - Hemiparesis [None]
  - Brain neoplasm malignant [None]
  - Facial paralysis [None]
  - Malignant neoplasm progression [None]
  - Movement disorder [None]

NARRATIVE: CASE EVENT DATE: 20160605
